FAERS Safety Report 17574112 (Version 1)
Quarter: 2020Q1

REPORT INFORMATION
  Report Type: Spontaneous
  Country: FR (occurrence: FR)
  Receive Date: 20200323
  Receipt Date: 20200323
  Transmission Date: 20200409
  Serious: Yes (Hospitalization)
  Sender: FDA-Public Use
  Company Number: FR-ALLERGAN-2012236US

PATIENT
  Sex: Male

DRUGS (5)
  1. URBANYL [Concomitant]
     Active Substance: CLOBAZAM
     Dosage: 1 DF, QD
     Route: 048
  2. COVERSYL [Concomitant]
     Active Substance: PERINDOPRIL
     Dosage: 1 DF, QD
     Route: 048
  3. PRAVASTATINE [Concomitant]
     Active Substance: PRAVASTATIN
  4. MILNACIPRAN - BP [Suspect]
     Active Substance: MILNACIPRAN
     Indication: DEPRESSION
     Dosage: 1 DF, QD
     Route: 048
     Dates: end: 20190912
  5. EUPRESSYL [Concomitant]
     Active Substance: URAPIDIL
     Dosage: 1 DF, QD
     Route: 048

REACTIONS (2)
  - Hepatocellular injury [Recovering/Resolving]
  - Product use issue [Unknown]

NARRATIVE: CASE EVENT DATE: 20190910
